FAERS Safety Report 6557534-3 (Version None)
Quarter: 2010Q1

REPORT INFORMATION
  Report Type: 
  Country: None (occurrence: None)
  Receive Date: 20100129
  Receipt Date: 20100122
  Transmission Date: 20100710
  Serious: Yes (Other)
  Sender: FDA-Public Use
  Company Number: US-ROCHE-681433

PATIENT
  Sex: Female
  Weight: 51.3 kg

DRUGS (1)
  1. CAPECITABINE [Suspect]
     Dosage: TWO WEEKS ON AND ONE WEEK OFF
     Route: 048
     Dates: start: 20090903, end: 20100104

REACTIONS (1)
  - MALIGNANT NEOPLASM PROGRESSION [None]
